FAERS Safety Report 4314050-7 (Version None)
Quarter: 2004Q1

REPORT INFORMATION
  Report Type: 
  Country: None (occurrence: None)
  Receive Date: 20040308
  Receipt Date: 20040308
  Transmission Date: 20041129
  Serious: Yes (Other)
  Sender: FDA-Public Use
  Company Number: None

PATIENT
  Age: 40 Year
  Sex: Female
  Weight: 55.7924 kg

DRUGS (1)
  1. PAXIL [Suspect]
     Indication: DEPRESSION
     Dosage: 10-30 MG DAILY ORAL
     Route: 048
     Dates: start: 20021126, end: 20040306

REACTIONS (8)
  - ANOREXIA [None]
  - DIZZINESS [None]
  - DRUG DEPENDENCE [None]
  - HALLUCINATION, AUDITORY [None]
  - HYPOAESTHESIA [None]
  - LETHARGY [None]
  - NAUSEA [None]
  - PARAESTHESIA [None]
